FAERS Safety Report 5700164-3 (Version None)
Quarter: 2008Q2

REPORT INFORMATION
  Report Type: 
  Country: None (occurrence: None)
  Receive Date: 20080410
  Receipt Date: 20080331
  Transmission Date: 20081010
  Serious: Yes (Hospitalization)
  Sender: FDA-Public Use
  Company Number: PHRM2008FR01156

PATIENT
  Age: 64 Year
  Sex: Male

DRUGS (12)
  1. MYFORTIC [Suspect]
     Indication: RENAL TRANSPLANT
     Dosage: 360 MG, QD
     Route: 048
  2. VASTEN [Suspect]
     Indication: DYSLIPIDAEMIA
     Dosage: 20 MG, QD
     Route: 048
  3. ALLOPURINOL [Suspect]
     Indication: GOUT
     Dosage: 200 MG, QD
     Route: 048
  4. PREDNISONE [Suspect]
     Indication: RENAL TRANSPLANT
     Dosage: 5 MG, QD
     Route: 048
  5. PROGRAF [Suspect]
     Indication: RENAL TRANSPLANT
     Dosage: 1 MG, QD
     Route: 048
  6. ISOPTIN [Suspect]
     Indication: HYPERTENSION
     Dosage: 240 MG, QD
     Route: 048
  7. ESOMEPRAZOLE [Suspect]
     Indication: GASTROOESOPHAGEAL REFLUX DISEASE
     Dosage: 40 MG, QD
     Route: 048
  8. XATRAL  /FRA/ [Suspect]
     Indication: BENIGN PROSTATIC HYPERPLASIA
     Dosage: 10 MG, QD
     Route: 048
  9. LASILIX [Concomitant]
  10. KAYEXALATE [Concomitant]
  11. KARDEGIC [Concomitant]
  12. STILNOX   /FRA/ [Concomitant]

REACTIONS (20)
  - ALVEOLITIS [None]
  - ASPERGILLOSIS [None]
  - BRONCHITIS [None]
  - C-REACTIVE PROTEIN INCREASED [None]
  - COUGH [None]
  - DEHYDRATION [None]
  - DIARRHOEA [None]
  - DYSPNOEA [None]
  - GENERAL PHYSICAL HEALTH DETERIORATION [None]
  - HYPOXIA [None]
  - INFLAMMATION [None]
  - INTERSTITIAL LUNG DISEASE [None]
  - LUNG DISORDER [None]
  - NEUTROPHILIA [None]
  - OXYGEN SATURATION DECREASED [None]
  - PO2 DECREASED [None]
  - PURULENT DISCHARGE [None]
  - RALES [None]
  - RENAL IMPAIRMENT [None]
  - VOMITING [None]
